FAERS Safety Report 19699258 (Version 2)
Quarter: 2021Q4

REPORT INFORMATION
  Report Type: Report from Study
  Country: CA (occurrence: CA)
  Receive Date: 20210813
  Receipt Date: 20211213
  Transmission Date: 20220303
  Serious: Yes (Hospitalization)
  Sender: FDA-Public Use
  Company Number: CA-CELGENE-CAN-20210802593

PATIENT
  Age: 61 Year
  Sex: Female

DRUGS (1)
  1. ONUREG [Suspect]
     Active Substance: AZACITIDINE
     Indication: Acute myeloid leukaemia
     Dosage: 300 MILLIGRAM
     Route: 048
     Dates: start: 20210718, end: 20210729

REACTIONS (2)
  - Blood pressure decreased [Unknown]
  - Syncope [Unknown]

NARRATIVE: CASE EVENT DATE: 20210729
